FAERS Safety Report 17030161 (Version 2)
Quarter: 2019Q4

REPORT INFORMATION
  Report Type: Spontaneous
  Country: US (occurrence: US)
  Receive Date: 20191114
  Receipt Date: 20191216
  Transmission Date: 20200122
  Serious: No
  Sender: FDA-Public Use
  Company Number: US-JNJFOC-20191109446

PATIENT
  Age: 27 Year
  Sex: Female
  Weight: 52.21 kg

DRUGS (1)
  1. STELARA [Suspect]
     Active Substance: USTEKINUMAB
     Indication: RHEUMATOID ARTHRITIS
     Dosage: THERAPY WAS ONGOING
     Route: 058

REACTIONS (4)
  - Syringe issue [Unknown]
  - Product use in unapproved indication [Unknown]
  - Product dose omission [Unknown]
  - Off label use [Unknown]

NARRATIVE: CASE EVENT DATE: 20191103
